FAERS Safety Report 4627140-6 (Version None)
Quarter: 2005Q2

REPORT INFORMATION
  Report Type: 
  Country: None (occurrence: None)
  Receive Date: 20050405
  Receipt Date: 20050331
  Transmission Date: 20051028
  Serious: Yes (Other)
  Sender: FDA-Public Use
  Company Number: MX-GLAXOSMITHKLINE-A0552392A

PATIENT
  Age: 10 Year
  Sex: Female

DRUGS (1)
  1. ZOFRAN [Suspect]
     Indication: PROPHYLAXIS
     Dosage: 4MG THREE TIMES PER DAY
     Route: 042
     Dates: start: 20050329, end: 20050331

REACTIONS (4)
  - DRY MOUTH [None]
  - HALLUCINATION, AUDITORY [None]
  - HEADACHE [None]
  - VISION BLURRED [None]
